FAERS Safety Report 22722726 (Version 3)
Quarter: 2024Q3

REPORT INFORMATION
  Report Type: Spontaneous
  Country: US (occurrence: US)
  Receive Date: 20230719
  Receipt Date: 20240917
  Transmission Date: 20241017
  Serious: No
  Sender: SANOFI AVENTIS
  Company Number: US-SA-SAC20230718000422

PATIENT
  Age: 24 Year
  Sex: Female
  Weight: 65.91 kg

DRUGS (1)
  1. DUPIXENT [Suspect]
     Active Substance: DUPILUMAB
     Indication: Dermatitis atopic
     Dosage: 300 MG, QOW
     Route: 058
     Dates: start: 20230317

REACTIONS (4)
  - Eczema eyelids [Unknown]
  - Dry skin [Unknown]
  - Rash [Recovering/Resolving]
  - Keratitis [Unknown]

NARRATIVE: CASE EVENT DATE: 20230101
